FAERS Safety Report 10745686 (Version 1)
Quarter: 2015Q1

REPORT INFORMATION
  Report Type: Spontaneous
  Country: US (occurrence: US)
  Receive Date: 20150128
  Receipt Date: 20150128
  Transmission Date: 20150721
  Serious: Yes (Death, Other)
  Sender: FDA-Public Use
  Company Number: US-BAYER-2015-008461

PATIENT
  Age: 46 Year
  Sex: Male

DRUGS (1)
  1. ACETYLSALICYLIC ACID (} 100 MG) [Suspect]
     Active Substance: ASPIRIN

REACTIONS (7)
  - Tachycardia [None]
  - Toxicity to various agents [Fatal]
  - Agitation [None]
  - Metabolic acidosis [None]
  - Acute kidney injury [None]
  - Anion gap [None]
  - Gastrointestinal haemorrhage [None]
